FAERS Safety Report 21817337 (Version 1)
Quarter: 2023Q1

REPORT INFORMATION
  Report Type: Report from Study
  Country: US (occurrence: US)
  Receive Date: 20230104
  Receipt Date: 20230104
  Transmission Date: 20230418
  Serious: No
  Sender: FDA-Public Use
  Company Number: US-ABBVIE-4227354

PATIENT
  Sex: Female

DRUGS (2)
  1. HUMIRA [Suspect]
     Active Substance: ADALIMUMAB
     Indication: Hidradenitis
     Dosage: CITRATE FREE
     Route: 058
  2. Covid-19 vaccination Pfizer/Biontech [Concomitant]
     Indication: COVID-19 immunisation
     Route: 030

REACTIONS (4)
  - Bronchitis [Unknown]
  - Weight decreased [Unknown]
  - Vomiting [Unknown]
  - Upper respiratory tract infection [Unknown]
